FAERS Safety Report 6301561-8 (Version None)
Quarter: 2009Q3

REPORT INFORMATION
  Report Type: 
  Country: None (occurrence: None)
  Receive Date: 20090805
  Receipt Date: 20090729
  Transmission Date: 20100115
  Serious: Yes (Other)
  Sender: FDA-Public Use
  Company Number: 2009SP016107

PATIENT
  Age: 37 Year
  Sex: Male

DRUGS (7)
  1. CELESTAMINE (BETAMETASONE/DEXCHLORPHENIRAMINE MALEATE) (BETAMETHASONE/ [Suspect]
     Indication: DERMATITIS ATOPIC
     Dosage: PO
     Route: 048
     Dates: end: 20020101
  2. STEROIDS (CORTICOSTEROIDS) [Suspect]
     Indication: DERMATITIS ATOPIC
     Dosage: TOP
     Route: 061
  3. NEORAL [Suspect]
     Indication: DERMATITIS ATOPIC
     Dosage: 250 MG;PO ; 100 MG;PO ; 75 MG;PO ; 50 MG;PO
     Route: 048
     Dates: start: 20030301, end: 20030411
  4. NEORAL [Suspect]
     Indication: DERMATITIS ATOPIC
     Dosage: 250 MG;PO ; 100 MG;PO ; 75 MG;PO ; 50 MG;PO
     Route: 048
     Dates: start: 20020201
  5. NEORAL [Suspect]
     Indication: DERMATITIS ATOPIC
     Dosage: 250 MG;PO ; 100 MG;PO ; 75 MG;PO ; 50 MG;PO
     Route: 048
     Dates: start: 20020501
  6. NEORAL [Suspect]
     Indication: DERMATITIS ATOPIC
     Dosage: 250 MG;PO ; 100 MG;PO ; 75 MG;PO ; 50 MG;PO
     Route: 048
     Dates: start: 20021101
  7. PROTOPIC [Concomitant]

REACTIONS (6)
  - ADRENAL INSUFFICIENCY [None]
  - GLAUCOMA [None]
  - IMMUNOSUPPRESSION [None]
  - KERATOCONUS [None]
  - LYMPHOMA [None]
  - PAIN [None]
